FAERS Safety Report 6980104-X (Version None)
Quarter: 2010Q3

REPORT INFORMATION
  Report Type: 
  Country: None (occurrence: None)
  Receive Date: 20100914
  Receipt Date: 20100902
  Transmission Date: 20110219
  Serious: No
  Sender: FDA-Public Use
  Company Number: US-JNJFOC-20100902967

PATIENT
  Sex: Female
  Weight: 81.65 kg

DRUGS (4)
  1. FENTANYL CITRATE [Suspect]
     Indication: BURNING MOUTH SYNDROME
     Route: 062
  2. PROTONIX [Concomitant]
     Indication: URTICARIA
     Route: 048
  3. INSULIN [Concomitant]
     Indication: DIABETES MELLITUS
     Route: 058
  4. LEVEMIR [Concomitant]
     Indication: DIABETES MELLITUS
     Route: 058

REACTIONS (6)
  - APPLICATION SITE PRURITUS [None]
  - DERMATITIS CONTACT [None]
  - DRUG EFFECT DECREASED [None]
  - ORAL DISCOMFORT [None]
  - OROPHARYNGEAL PAIN [None]
  - WRONG TECHNIQUE IN DRUG USAGE PROCESS [None]
